FAERS Safety Report 7953270-7 (Version None)
Quarter: 2011Q4

REPORT INFORMATION
  Report Type: 
  Country: None (occurrence: None)
  Receive Date: 20111201
  Receipt Date: 20111117
  Transmission Date: 20120403
  Serious: Yes (Other)
  Sender: FDA-Public Use
  Company Number: DE-MYLANLABS-2011S1023695

PATIENT
  Age: 46 Year
  Sex: Female
  Weight: 82 kg

DRUGS (2)
  1. MARCUMAR [Concomitant]
     Indication: DEEP VEIN THROMBOSIS
     Dosage: 0.5 - 2.5
     Route: 048
     Dates: start: 20110203
  2. TOPIRAMATE [Suspect]
     Indication: EPILEPSY
     Route: 048
     Dates: start: 20110203

REACTIONS (2)
  - INTERNATIONAL NORMALISED RATIO DECREASED [None]
  - COAGULATION TIME SHORTENED [None]
